FAERS Safety Report 12558649 (Version 2)
Quarter: 2016Q3

REPORT INFORMATION
  Report Type: Spontaneous
  Country: US (occurrence: US)
  Receive Date: 20160715
  Receipt Date: 20160917
  Transmission Date: 20161109
  Serious: Yes (Other)
  Sender: FDA-Public Use
  Company Number: US-AMGEN-USASP2016088704

PATIENT
  Age: 40 Year
  Sex: Male
  Weight: 93 kg

DRUGS (49)
  1. NPLATE [Suspect]
     Active Substance: ROMIPLOSTIM
     Dosage: 525 MCG, UNK
     Route: 058
     Dates: start: 20160627, end: 20160628
  2. SODIUM CHLORIDE. [Concomitant]
     Active Substance: SODIUM CHLORIDE
     Dosage: 25 ML, Q8H
     Route: 042
     Dates: start: 20160718, end: 20160726
  3. ALBUTEROL. [Concomitant]
     Active Substance: ALBUTEROL
     Dosage: 3 ML, Q2H PRN
     Route: 065
     Dates: start: 20160719, end: 20160727
  4. HYDROMORPHONE [Concomitant]
     Active Substance: HYDROMORPHONE
     Dosage: 0.4 MG, AS NECESSARY
     Route: 042
     Dates: start: 20160525, end: 20160601
  5. METHYLPREDNISOLONE SODIUM SUCCINATE. [Concomitant]
     Active Substance: METHYLPREDNISOLONE SODIUM SUCCINATE
     Dosage: 100 MG, UNK
     Route: 042
     Dates: start: 20160527, end: 20160527
  6. SODIUM CHLORIDE. [Concomitant]
     Active Substance: SODIUM CHLORIDE
     Dosage: 1000 ML, CONTI IV
     Route: 042
     Dates: start: 20160510, end: 20160510
  7. NPLATE [Suspect]
     Active Substance: ROMIPLOSTIM
     Dosage: 430 MCG, UNK
     Route: 058
     Dates: start: 20160603, end: 20160620
  8. PREDNISONE. [Concomitant]
     Active Substance: PREDNISONE
     Dosage: 40 MG, BID
     Route: 048
     Dates: start: 20160510, end: 20160730
  9. ACETAMINOPHEN. [Concomitant]
     Active Substance: ACETAMINOPHEN
     Dosage: 650 MG, AS NECESSARY
     Route: 048
     Dates: start: 20160509, end: 20160727
  10. ALBUTEROL. [Concomitant]
     Active Substance: ALBUTEROL
     Dosage: 2.5 MG, AS NECESSARY
     Route: 065
     Dates: start: 20160510, end: 20160603
  11. DEXAMETHASONE. [Concomitant]
     Active Substance: DEXAMETHASONE
     Dosage: 40 MG, DAILY
     Route: 048
     Dates: start: 20160528, end: 20160603
  12. DEXAMETHASONE. [Concomitant]
     Active Substance: DEXAMETHASONE
     Dosage: 3 MG, DAILY
     Route: 048
     Dates: start: 20160718, end: 20160720
  13. SODIUM CHLORIDE. [Concomitant]
     Active Substance: SODIUM CHLORIDE
     Dosage: 10 ML, Q12H
     Route: 042
     Dates: start: 20160722, end: 20160727
  14. ONDANSETRON [Concomitant]
     Active Substance: ONDANSETRON
     Dosage: 4 MG, Q8H PRN
     Route: 042
     Dates: start: 20160509, end: 20160603
  15. ALTEPLASE [Concomitant]
     Active Substance: ALTEPLASE
     Dosage: 2 MG, ONE TIME DOSE
     Route: 042
     Dates: start: 20160724
  16. FERROUS GLUCONATE [Concomitant]
     Active Substance: FERROUS GLUCONATE
     Dosage: 324 MG, UNK
     Route: 048
     Dates: start: 20160725, end: 20160727
  17. KETOROLAC [Concomitant]
     Active Substance: KETOROLAC\KETOROLAC TROMETHAMINE
     Dosage: 30 MG, UNK
     Route: 042
     Dates: start: 20160718, end: 20160718
  18. LEVOFLOXACIN. [Concomitant]
     Active Substance: LEVOFLOXACIN
     Dosage: 70 MG, QD
     Route: 042
     Dates: start: 20160718, end: 20160721
  19. PIPERACILLIN AND TAZOBACTAM [Concomitant]
     Active Substance: PIPERACILLIN SODIUM\TAZOBACTAM SODIUM
     Dosage: 50 ML, Q8H
     Route: 042
     Dates: start: 20160718, end: 20160726
  20. NPLATE [Suspect]
     Active Substance: ROMIPLOSTIM
     Dosage: 180 MCG, UNK
     Route: 058
     Dates: start: 20160527, end: 20160527
  21. NPLATE [Suspect]
     Active Substance: ROMIPLOSTIM
     Dosage: 460 MCG, UNK
     Route: 058
     Dates: start: 20160719, end: 20160719
  22. DIPHENHYDRAMINE. [Concomitant]
     Active Substance: DIPHENHYDRAMINE
     Dosage: 50 MG, AS NECESSARY
     Route: 048
     Dates: start: 20160520, end: 20160610
  23. HYDROCODONE BITARTRATE AND ACETAMINOPHEN [Concomitant]
     Active Substance: ACETAMINOPHEN\HYDROCODONE BITARTRATE
     Dosage: 1 TABLET, AS NECESSARY
     Route: 048
     Dates: start: 20160525, end: 20160526
  24. LACTATED RINGERS [Concomitant]
     Active Substance: CALCIUM CHLORIDE\POTASSIUM CHLORIDE\SODIUM CHLORIDE\SODIUM LACTATE
     Dosage: 1000 ML, CONTI IV
     Route: 042
     Dates: start: 20160525, end: 20160526
  25. NALOXONE [Concomitant]
     Active Substance: NALOXONE
     Dosage: 004 MG, 02MIN PRN
     Route: 042
     Dates: start: 20160509, end: 20160603
  26. CHOLECALCIFEROL [Concomitant]
     Active Substance: CHOLECALCIFEROL
     Dosage: 1000 UNITS= 1 TABLET, 400 UNITS= 1ML), QD
     Route: 048
     Dates: start: 20160515, end: 20160602
  27. HAEMOPHILUS B CONJUGATE VACCINE [Concomitant]
     Active Substance: HAEMOPHILUS B CONJUGATE VACCINE
     Dosage: 10 MCG, UNK
     Route: 030
     Dates: start: 20160518, end: 20160518
  28. METHYLPREDNISOLONE SODIUM SUCCINATE. [Concomitant]
     Active Substance: METHYLPREDNISOLONE SODIUM SUCCINATE
     Dosage: 125 MG, ONE TIME DOSE
     Route: 042
     Dates: start: 20160510, end: 20160510
  29. VANCOMYCIN [Concomitant]
     Active Substance: VANCOMYCIN
     Dosage: 1250 MG, Q8H
     Route: 042
     Dates: start: 20160718, end: 20160719
  30. RITUXAN [Concomitant]
     Active Substance: RITUXIMAB
     Dosage: 700 MG, UNK
     Route: 042
     Dates: start: 20160520, end: 20160610
  31. PREDNISONE. [Concomitant]
     Active Substance: PREDNISONE
     Dosage: 30 MG, BID
     Route: 048
     Dates: start: 20160527, end: 20160528
  32. CEFOXITIN [Concomitant]
     Active Substance: CEFOXITIN SODIUM
     Dosage: 50 ML (2000 MG), UNK
     Route: 042
     Dates: start: 20160525, end: 20160525
  33. DIPHENHYDRAMINE. [Concomitant]
     Active Substance: DIPHENHYDRAMINE
     Dosage: 25 MG, AS NECESSARY
     Route: 048
     Dates: start: 20160517, end: 20160603
  34. OXYCODONE [Concomitant]
     Active Substance: OXYCODONE
     Dosage: Q4H PRN
     Route: 048
     Dates: start: 20160526, end: 20160602
  35. PANTOPRAZOLE [Concomitant]
     Active Substance: PANTOPRAZOLE SODIUM
     Dosage: 40 MG, DAILY
     Route: 048
     Dates: start: 20160525, end: 20160603
  36. PNEUMOCOCCAL VACCINE POLYVALENT NOS [Concomitant]
     Active Substance: PNEUMOCOCCAL VACCINE POLYVALENT
     Dosage: 25 MG, UNK
     Route: 030
     Dates: start: 20160517, end: 20160520
  37. NYSTATIN. [Concomitant]
     Active Substance: NYSTATIN
     Dosage: 5 ML, QID
     Route: 048
     Dates: start: 20160723, end: 20160727
  38. SULFAMETHOXAZOLE AND TRIMETHOPRIM [Concomitant]
     Active Substance: SULFAMETHOXAZOLE\TRIMETHOPRIM
     Dosage: 475 MG, Q6H
     Route: 042
     Dates: start: 20150720, end: 20160727
  39. NPLATE [Suspect]
     Active Substance: ROMIPLOSTIM
     Indication: IMMUNE THROMBOCYTOPENIC PURPURA
     Dosage: UNK
     Route: 065
     Dates: start: 20160520
  40. HYDROMORPHONE [Concomitant]
     Active Substance: HYDROMORPHONE
     Dosage: 0.8 MG, AS NECESSARY
     Route: 042
     Dates: start: 20160525, end: 20160601
  41. SODIUM CHLORIDE. [Concomitant]
     Active Substance: SODIUM CHLORIDE
     Dosage: 3 ML, Q8H
     Route: 042
     Dates: start: 20160509, end: 20160525
  42. NITROGLYCERIN. [Concomitant]
     Active Substance: NITROGLYCERIN
     Dosage: 0.4 MG, Q5MIN PRN
     Route: 060
     Dates: start: 20160510, end: 20160525
  43. FAMOTIDINE. [Concomitant]
     Active Substance: FAMOTIDINE
     Dosage: 20 MG, BID
     Dates: start: 20160718, end: 20160727
  44. NPLATE [Suspect]
     Active Substance: ROMIPLOSTIM
     Dosage: 90 MCG, UNK
     Route: 058
     Dates: start: 20160521, end: 20160521
  45. NPLATE [Suspect]
     Active Substance: ROMIPLOSTIM
     Dosage: 270 MCG, UNK
     Route: 058
     Dates: start: 20160528, end: 20160528
  46. IMMUNOGLOBULIN [Concomitant]
     Active Substance: HUMAN IMMUNOGLOBULIN G
     Dosage: 10 UNK, Q30MIN
     Route: 042
     Dates: start: 20160513, end: 20160524
  47. PREDNISONE. [Concomitant]
     Active Substance: PREDNISONE
     Indication: ATYPICAL PNEUMONIA
     Dosage: 20 MG, DAILY
     Route: 048
     Dates: start: 20160727, end: 20160730
  48. IPRATROPIUM [Concomitant]
     Active Substance: IPRATROPIUM
     Dosage: 3 ML, AS NECESSARY
     Route: 065
     Dates: start: 20160719, end: 20160727
  49. MORPHINE [Concomitant]
     Active Substance: MORPHINE
     Dosage: 4 MG, UNK
     Route: 042
     Dates: start: 20160525, end: 20160525

REACTIONS (5)
  - Platelet count decreased [Unknown]
  - Platelet count increased [Unknown]
  - Thrombocytosis [Unknown]
  - Drug effect delayed [Unknown]
  - Off label use [Unknown]

NARRATIVE: CASE EVENT DATE: 20160614
